FAERS Safety Report 10161239 (Version 6)
Quarter: 2014Q3

REPORT INFORMATION
  Report Type: Report from Study
  Country: GB (occurrence: GB)
  Receive Date: 20140508
  Receipt Date: 20140721
  Transmission Date: 20150326
  Serious: Yes (Death, Hospitalization)
  Sender: FDA-Public Use
  Company Number: GB-MERCK-1405GBR001803

PATIENT
  Age: 78 Year
  Sex: Male
  Weight: 74 kg

DRUGS (7)
  1. THALIDOMIDE [Suspect]
     Active Substance: THALIDOMIDE
     Indication: PLASMA CELL MYELOMA
     Dosage: 5 MG, QD (01-28)
     Route: 048
     Dates: start: 20120322
  2. VORINOSTAT [Suspect]
     Active Substance: VORINOSTAT
     Indication: PLASMA CELL MYELOMA
     Dosage: 300 MG, QD (01-7+15-21)
     Route: 048
     Dates: start: 20130228, end: 20140422
  3. CYCLOPHOSPHAMIDE. [Suspect]
     Active Substance: CYCLOPHOSPHAMIDE
     Indication: PLASMA CELL MYELOMA
     Dosage: 500 MG, QD (01,8,15,22)
     Route: 048
     Dates: start: 20120322
  4. DEXAMETHASONE. [Suspect]
     Active Substance: DEXAMETHASONE
     Indication: PLASMA CELL MYELOMA
     Dosage: 20 MG, QD (01-4+15-18)
     Route: 048
     Dates: start: 20120322
  5. BORTEZOMIB [Suspect]
     Active Substance: BORTEZOMIB
     Indication: PLASMA CELL MYELOMA
     Dosage: 1.3 MG/M2, QD (01,4,8+11)
     Route: 042
     Dates: start: 20130918
  6. LENALIDOMIDE [Suspect]
     Active Substance: LENALIDOMIDE
     Indication: PLASMA CELL MYELOMA
     Dosage: 10 MG, QD (01-21)
     Route: 048
     Dates: start: 20130228
  7. VORINOSTAT [Suspect]
     Active Substance: VORINOSTAT
     Dosage: 300 MG, QD (01-7+15-21)
     Dates: start: 20130222, end: 20140222

REACTIONS (1)
  - Colon cancer metastatic [Fatal]

NARRATIVE: CASE EVENT DATE: 20140414
